FAERS Safety Report 24285298 (Version 2)
Quarter: 2024Q3

REPORT INFORMATION
  Report Type: Spontaneous
  Country: PL (occurrence: PL)
  Receive Date: 20240905
  Receipt Date: 20240924
  Transmission Date: 20241017
  Serious: Yes (Hospitalization, Other)
  Sender: AUROBINDO
  Company Number: PL-GERMAN-SPO/POL/24/0012260

PATIENT
  Age: 30 Year
  Sex: Female

DRUGS (1)
  1. CINACALCET [Suspect]
     Active Substance: CINACALCET
     Indication: Hyperparathyroidism primary
     Dosage: UNK 3 TRIMESTER
     Route: 065

REACTIONS (9)
  - Abortion induced [Unknown]
  - Drug ineffective for unapproved indication [Unknown]
  - Infection [Unknown]
  - Placental disorder [Unknown]
  - Exposure during pregnancy [Unknown]
  - Pregnancy related infection [Unknown]
  - Adverse event [Unknown]
  - Drug effect less than expected [Unknown]
  - Maternal exposure during pregnancy [Unknown]
